FAERS Safety Report 25529685 (Version 1)
Quarter: 2025Q3

REPORT INFORMATION
  Report Type: Spontaneous
  Country: EU (occurrence: EU)
  Receive Date: 20250708
  Receipt Date: 20250708
  Transmission Date: 20251020
  Serious: Yes (Hospitalization)
  Sender: CHEPLAPHARM
  Company Number: None

PATIENT
  Age: 15 Year
  Sex: Male

DRUGS (15)
  1. QUETIAPINE [Suspect]
     Active Substance: QUETIAPINE
     Dates: start: 20250317
  2. QUETIAPINE [Suspect]
     Active Substance: QUETIAPINE
     Dates: start: 20250425
  3. QUETIAPINE [Suspect]
     Active Substance: QUETIAPINE
     Dates: start: 20250516
  4. FLUOXETINE HYDROCHLORIDE [Suspect]
     Active Substance: FLUOXETINE HYDROCHLORIDE
     Dates: start: 20250308
  5. FLUOXETINE HYDROCHLORIDE [Suspect]
     Active Substance: FLUOXETINE HYDROCHLORIDE
     Dates: start: 20250313
  6. FLUOXETINE HYDROCHLORIDE [Suspect]
     Active Substance: FLUOXETINE HYDROCHLORIDE
     Dates: start: 20250509
  7. FLUOXETINE HYDROCHLORIDE [Suspect]
     Active Substance: FLUOXETINE HYDROCHLORIDE
     Dates: start: 20250610
  8. FLUOXETINE HYDROCHLORIDE [Suspect]
     Active Substance: FLUOXETINE HYDROCHLORIDE
  9. MELATONIN [Suspect]
     Active Substance: MELATONIN
     Dates: start: 20250325
  10. MELATONIN [Suspect]
     Active Substance: MELATONIN
     Dates: start: 20250327
  11. MELATONIN [Suspect]
     Active Substance: MELATONIN
     Dates: start: 20250403
  12. MELATONIN [Suspect]
     Active Substance: MELATONIN
     Dates: start: 20250407
  13. ATARAX [Concomitant]
     Active Substance: HYDROXYZINE HYDROCHLORIDE
     Dates: start: 20250421
  14. DIPHENHYDRAMINE HYDROCHLORIDE [Concomitant]
     Active Substance: DIPHENHYDRAMINE HYDROCHLORIDE
     Dates: start: 20250314, end: 20250316
  15. DIPHENHYDRAMINE HYDROCHLORIDE [Concomitant]
     Active Substance: DIPHENHYDRAMINE HYDROCHLORIDE
     Dates: start: 20250320

REACTIONS (2)
  - Electrocardiogram abnormal [Not Recovered/Not Resolved]
  - Laboratory test abnormal [Not Recovered/Not Resolved]
